FAERS Safety Report 18765550 (Version 1)
Quarter: 2021Q1

REPORT INFORMATION
  Report Type: Spontaneous
  Country: NL (occurrence: NL)
  Receive Date: 20210120
  Receipt Date: 20210120
  Transmission Date: 20210419
  Serious: Yes (Hospitalization, Other)
  Sender: FDA-Public Use
  Company Number: NL-BAUSCH-BL-2021-002053

PATIENT
  Sex: Female

DRUGS (1)
  1. MOVIPREP [Suspect]
     Active Substance: ASCORBIC ACID\POLYETHYLENE GLYCOL 3350\POTASSIUM CHLORIDE\SODIUM ASCORBATE\SODIUM CHLORIDE\SODIUM SULFATE
     Indication: BOWEL PREPARATION
     Route: 065
     Dates: start: 20170810

REACTIONS (15)
  - Social avoidant behaviour [Unknown]
  - Seizure [Unknown]
  - Memory impairment [Unknown]
  - Brain injury [Unknown]
  - Brain oedema [Unknown]
  - Electrocardiogram abnormal [Unknown]
  - Loss of consciousness [Recovered/Resolved]
  - Unevaluable event [Unknown]
  - Diarrhoea [Unknown]
  - Chills [Unknown]
  - Vomiting [Unknown]
  - Headache [Unknown]
  - Hyponatraemia [Unknown]
  - Fatigue [Unknown]
  - Impaired work ability [Unknown]

NARRATIVE: CASE EVENT DATE: 201708
